FAERS Safety Report 6689367-1 (Version None)
Quarter: 2010Q2

REPORT INFORMATION
  Report Type: 
  Country: None (occurrence: None)
  Receive Date: 20100419
  Receipt Date: 20100419
  Transmission Date: 20101027
  Serious: Yes (Other)
  Sender: FDA-Public Use
  Company Number: None

PATIENT
  Age: 69 Year
  Sex: Female
  Weight: 68.0396 kg

DRUGS (1)
  1. ABILIFY [Suspect]
     Dosage: 15 MG MORNING, 7.5MG NIGHT DAILY
     Dates: start: 20091210, end: 20100415

REACTIONS (1)
  - TREMOR [None]
